FAERS Safety Report 8346948-7 (Version None)
Quarter: 2012Q2

REPORT INFORMATION
  Report Type: 
  Country: None (occurrence: None)
  Receive Date: 20120509
  Receipt Date: 20120507
  Transmission Date: 20120825
  Serious: Yes (Hospitalization)
  Sender: FDA-Public Use
  Company Number: NL-SANOFI-AVENTIS-2012SA023327

PATIENT
  Age: 59 Year
  Sex: Female
  Weight: 69 kg

DRUGS (8)
  1. TRIAMTERENE AND HYDROCHLOROTHIAZIDE [Suspect]
     Dosage: DOSE: 25/50 (UNITS NOT REPORTED)
     Route: 048
     Dates: start: 20060101
  2. ATACAND [Suspect]
     Indication: HYPERTENSION
     Route: 048
     Dates: start: 20060101
  3. TRIAMTERENE AND HYDROCHLOROTHIAZIDE [Suspect]
     Indication: HYPERTENSION
     Dosage: DOSE: 25/50 (UNITS NOT REPORTED)
     Route: 048
     Dates: start: 20060101
  4. DEXAMETHASONE [Concomitant]
     Route: 042
     Dates: start: 20110624, end: 20110624
  5. DOCETAXEL [Suspect]
     Route: 042
     Dates: start: 20110421
  6. CLEMASTINE [Concomitant]
     Route: 042
     Dates: start: 20110624, end: 20110624
  7. OMEPRAZOLE [Concomitant]
     Route: 048
     Dates: start: 20110430, end: 20110825
  8. CAPECITABINE [Suspect]
     Indication: BREAST CANCER
     Dosage: DOSE:825 MG/M2, TWICE DAILY, FROM 1 TO 14 DAYS
     Route: 048
     Dates: start: 20110421

REACTIONS (1)
  - CIRCULATORY COLLAPSE [None]
